FAERS Safety Report 6613545-0 (Version None)
Quarter: 2010Q1

REPORT INFORMATION
  Report Type: 
  Country: None (occurrence: None)
  Receive Date: 20100304
  Receipt Date: 20100219
  Transmission Date: 20100710
  Serious: Yes (Other)
  Sender: FDA-Public Use
  Company Number: GB-ROCHE-614355

PATIENT
  Age: 73 Year
  Sex: Female

DRUGS (1)
  1. AVASTIN [Suspect]
     Indication: DRUG USE FOR UNKNOWN INDICATION
     Route: 031

REACTIONS (7)
  - BLINDNESS [None]
  - CONJUNCTIVAL HYPERAEMIA [None]
  - HYPOPYON [None]
  - IRIDOCYCLITIS [None]
  - PAIN [None]
  - TOXIC ANTERIOR SEGMENT SYNDROME [None]
  - VISUAL ACUITY REDUCED [None]
